FAERS Safety Report 19373212 (Version 1)
Quarter: 2021Q2

REPORT INFORMATION
  Report Type: Spontaneous
  Country: DK (occurrence: DK)
  Receive Date: 20210604
  Receipt Date: 20210604
  Transmission Date: 20210717
  Serious: Yes (Hospitalization)
  Sender: FDA-Public Use
  Company Number: DK-ACCORD-227017

PATIENT
  Age: 87 Year
  Sex: Female

DRUGS (3)
  1. SIMVASTATIN KRKA [Interacting]
     Active Substance: SIMVASTATIN
     Indication: HYPERCHOLESTEROLAEMIA
     Dosage: STRENGTH: 40 MG
     Route: 048
     Dates: start: 20171010, end: 20210317
  2. PANODIL [Interacting]
     Active Substance: ACETAMINOPHEN
     Indication: PAIN
     Dosage: STRENGTH: 500 MG
     Route: 048
     Dates: start: 20210202, end: 20210317
  3. LETROZOLE ACCORD [Suspect]
     Active Substance: LETROZOLE
     Indication: BREAST CANCER
     Dosage: STRENGTH: 2.5 MG
     Route: 048
     Dates: start: 20210201, end: 202103

REACTIONS (8)
  - Hepatic enzyme increased [Recovering/Resolving]
  - Drug interaction [Unknown]
  - Vomiting [Unknown]
  - Fall [Unknown]
  - Malaise [Unknown]
  - General physical health deterioration [Unknown]
  - Confusional state [Unknown]
  - Abdominal pain [Unknown]

NARRATIVE: CASE EVENT DATE: 202103
